FAERS Safety Report 6101450-8 (Version None)
Quarter: 2009Q1

REPORT INFORMATION
  Report Type: 
  Country: None (occurrence: None)
  Receive Date: 20090304
  Receipt Date: 20011105
  Transmission Date: 20090719
  Serious: No
  Sender: FDA-Public Use
  Company Number: US-ABBOTT-08P-163-0457565-00

PATIENT

DRUGS (1)
  1. VALPROATE SODIUM [Suspect]
     Indication: BIPOLAR DISORDER
     Dosage: DOSE INCREASED BY 1500MG

REACTIONS (1)
  - DRUG LEVEL BELOW THERAPEUTIC [None]
